FAERS Safety Report 4582130-7 (Version None)
Quarter: 2005Q1

REPORT INFORMATION
  Report Type: 
  Country: None (occurrence: None)
  Receive Date: 20050119
  Receipt Date: 20040312
  Transmission Date: 20050727
  Serious: Yes (Other)
  Sender: FDA-Public Use
  Company Number: A03200400771

PATIENT
  Age: 86 Year
  Sex: Female
  Weight: 53.5244 kg

DRUGS (3)
  1. PLAVIX [Suspect]
     Indication: BLOOD DISORDER
     Dosage: 75 MG 2/WEEK - ORAL
     Route: 048
     Dates: start: 20020101
  2. PLAVIX [Suspect]
     Indication: CEREBROVASCULAR ACCIDENT PROPHYLAXIS
     Dosage: 75 MG 2/WEEK - ORAL
     Route: 048
     Dates: start: 20020101
  3. ACETYL SALICYLIC ACID USP BAT [Concomitant]

REACTIONS (4)
  - CEREBROVASCULAR ACCIDENT [None]
  - HAEMORRHAGIC DIATHESIS [None]
  - INCREASED TENDENCY TO BRUISE [None]
  - PERIORBITAL HAEMATOMA [None]
